FAERS Safety Report 7344593-3 (Version None)
Quarter: 2011Q1

REPORT INFORMATION
  Report Type: 
  Country: None (occurrence: None)
  Receive Date: 20110308
  Receipt Date: 20110308
  Transmission Date: 20110831
  Serious: Yes (Death, Congenital Anomaly)
  Sender: FDA-Public Use
  Company Number: None

PATIENT
  Age: 42 Year
  Sex: Female

DRUGS (3)
  1. PAXIL [Suspect]
     Indication: ANXIETY
     Dosage: LEXAPRO
     Dates: start: 19930101, end: 20110101
  2. PAXIL [Suspect]
     Indication: PANIC ATTACK
     Dosage: LEXAPRO
     Dates: start: 19930101, end: 20110101
  3. ZOLOFT [Suspect]
     Indication: DEPRESSION
     Dosage: EFFEXOR
     Dates: start: 19930101, end: 20110101

REACTIONS (2)
  - ABORTION SPONTANEOUS [None]
  - DRUG EXPOSURE DURING PREGNANCY [None]
